FAERS Safety Report 7689700-8 (Version None)
Quarter: 2011Q3

REPORT INFORMATION
  Report Type: 
  Country: None (occurrence: None)
  Receive Date: 20110817
  Receipt Date: 20110811
  Transmission Date: 20111222
  Serious: Yes (Death)
  Sender: FDA-Public Use
  Company Number: DE-AMGEN-DEUSP2011034113

PATIENT
  Age: 57 Year
  Sex: Female
  Weight: 100 kg

DRUGS (20)
  1. AMLODIPINE [Concomitant]
     Indication: BLOOD PRESSURE
     Dosage: 10 MG, QD
  2. CALCIUM/VITAMIN D                  /00188401/ [Concomitant]
     Indication: OSTEOPOROSIS PROPHYLAXIS
     Dosage: 1000880 MG, QD
  3. ALLOPURINOL [Concomitant]
     Indication: BLOOD URIC ACID
     Dosage: 300 MG, QD
  4. PASPERTIN                          /00041902/ [Concomitant]
     Indication: ABDOMINAL DISTENSION
     Dosage: 30 GTT, TID
     Dates: start: 20101201
  5. PASPERTIN                          /00041902/ [Concomitant]
     Indication: ERUCTATION
  6. CODEINE SUL TAB [Concomitant]
     Indication: COUGH
  7. RAMIPRIL [Concomitant]
     Indication: BLOOD PRESSURE
     Dosage: 5 MG, QD
  8. TORSEMIDE [Concomitant]
     Dosage: 5 MG, QD
     Dates: start: 20101101
  9. ATOSIL                             /00033002/ [Concomitant]
     Indication: AFFECTIVE DISORDER
     Dosage: 4 GTT, BID
  10. CODEINE SUL TAB [Concomitant]
     Indication: SLEEP DISORDER
     Dosage: 20 GTT, QD
  11. ESIDRIX [Concomitant]
     Indication: FLUID RETENTION
     Dosage: 25 MG, QD
  12. PANTOZOL                           /01263202/ [Concomitant]
     Indication: PROPHYLAXIS
     Dosage: 40 MG, QD
  13. ZOLOFT [Concomitant]
     Indication: AFFECTIVE DISORDER
     Dosage: UNK UNK, QD
  14. COTRIM DS [Concomitant]
     Indication: PROPHYLAXIS
  15. NPLATE [Suspect]
     Indication: IDIOPATHIC THROMBOCYTOPENIC PURPURA
     Dosage: 100 A?G, ONE TIME DOSE
     Route: 058
     Dates: start: 20101220, end: 20101220
  16. MORONAL [Concomitant]
     Dosage: UNK UNK, QID
     Dates: start: 20101101
  17. LORAZEPAM [Concomitant]
     Indication: SLEEP DISORDER
     Dosage: UNK UNK, QD
  18. KALINOR                            /00031402/ [Concomitant]
     Indication: HYPOKALAEMIA
     Dosage: UNK UNK, QD
  19. METOPROLOL TARTRATE [Concomitant]
     Indication: BLOOD PRESSURE
     Dosage: 47.5 MG, UNK
  20. CORTISONE ACETATE [Concomitant]
     Indication: IDIOPATHIC THROMBOCYTOPENIC PURPURA
     Dosage: UNK
     Dates: start: 20100928

REACTIONS (5)
  - HYPERTENSIVE CRISIS [None]
  - HEPATIC FAILURE [None]
  - OEDEMA [None]
  - CARDIOVASCULAR INSUFFICIENCY [None]
  - DYSPNOEA [None]
